FAERS Safety Report 5606518-8 (Version None)
Quarter: 2008Q1

REPORT INFORMATION
  Report Type: 
  Country: None (occurrence: None)
  Receive Date: 20080129
  Receipt Date: 20080123
  Transmission Date: 20080703
  Serious: Yes (Death)
  Sender: FDA-Public Use
  Company Number: B0500590A

PATIENT
  Age: 4 Year
  Sex: Male
  Weight: 12.6 kg

DRUGS (9)
  1. MELPHALAN [Suspect]
     Indication: STEM CELL TRANSPLANT
     Dosage: 70MGM2 PER DAY
     Route: 042
     Dates: start: 20060614
  2. THIOTEPA [Suspect]
     Indication: STEM CELL TRANSPLANT
     Dosage: 200MGM2 PER DAY
     Route: 065
  3. CYCLOPHOSPHAMIDE [Concomitant]
     Indication: NEUROBLASTOMA
     Route: 065
     Dates: start: 20060126, end: 20060418
  4. PIRARUBICIN [Concomitant]
     Indication: NEUROBLASTOMA
     Route: 065
     Dates: start: 20060128, end: 20060419
  5. DOXORUBICIN HCL [Concomitant]
     Indication: NEUROBLASTOMA
     Route: 065
     Dates: start: 20060126, end: 20060421
  6. ETOPOSIDE [Concomitant]
     Indication: NEUROBLASTOMA
     Route: 065
     Dates: start: 20060126, end: 20060421
  7. CISPLATIN [Concomitant]
     Indication: NEUROBLASTOMA
     Route: 065
     Dates: start: 20060126, end: 20060421
  8. VINCRISTINE [Concomitant]
     Indication: NEUROBLASTOMA
     Route: 065
     Dates: start: 20060126, end: 20060628
  9. DACTINOMYCIN [Concomitant]
     Indication: CLOSTRIDIUM DIFFICILE COLITIS
     Route: 048
     Dates: start: 20060126, end: 20060815

REACTIONS (26)
  - ASCITES [None]
  - BLOOD LACTATE DEHYDROGENASE INCREASED [None]
  - BLOOD PRESSURE DECREASED [None]
  - BRAIN OEDEMA [None]
  - CARDIAC ARREST [None]
  - CLOSTRIDIUM DIFFICILE COLITIS [None]
  - DYSPNOEA [None]
  - HAEMATEMESIS [None]
  - HAEMATOCHEZIA [None]
  - HAEMOGLOBIN DECREASED [None]
  - HAPTOGLOBIN DECREASED [None]
  - HEART RATE DECREASED [None]
  - HYPERBILIRUBINAEMIA [None]
  - JAUNDICE [None]
  - LIVER DISORDER [None]
  - LIVER TENDERNESS [None]
  - MELAENA [None]
  - MULTI-ORGAN FAILURE [None]
  - NEURON-SPECIFIC ENOLASE INCREASED [None]
  - PNEUMOTHORAX [None]
  - PULMONARY HAEMORRHAGE [None]
  - RENAL IMPAIRMENT [None]
  - RESPIRATORY FAILURE [None]
  - THROMBOTIC MICROANGIOPATHY [None]
  - VENOOCCLUSIVE DISEASE [None]
  - VENOOCCLUSIVE LIVER DISEASE [None]
